FAERS Safety Report 8313021-3 (Version None)
Quarter: 2012Q2

REPORT INFORMATION
  Report Type: 
  Country: None (occurrence: None)
  Receive Date: 20120426
  Receipt Date: 20120416
  Transmission Date: 20120825
  Serious: Yes (Other)
  Sender: FDA-Public Use
  Company Number: US-JNJFOC-20120407342

PATIENT
  Sex: Female
  Weight: 61.24 kg

DRUGS (1)
  1. SIMPONI [Suspect]
     Indication: ANKYLOSING SPONDYLITIS
     Route: 058
     Dates: end: 20120327

REACTIONS (4)
  - NASOPHARYNGITIS [None]
  - DRUG DOSE OMISSION [None]
  - RASH PUSTULAR [None]
  - BACTERIAL INFECTION [None]
